FAERS Safety Report 16343017 (Version 1)
Quarter: 2019Q2

REPORT INFORMATION
  Report Type: Spontaneous
  Country: SK (occurrence: SK)
  Receive Date: 20190522
  Receipt Date: 20190522
  Transmission Date: 20190711
  Serious: Yes (Other)
  Sender: FDA-Public Use
  Company Number: SK-JNJFOC-20190524044

PATIENT
  Age: 5 Decade
  Sex: Male

DRUGS (1)
  1. REMICADE [Suspect]
     Active Substance: INFLIXIMAB
     Indication: CROHN^S DISEASE
     Route: 042
     Dates: start: 201802

REACTIONS (2)
  - Nasopharyngitis [Unknown]
  - Skin disorder [Unknown]

NARRATIVE: CASE EVENT DATE: 2018
